FAERS Safety Report 9439873 (Version 1)
Quarter: 2013Q3

REPORT INFORMATION
  Report Type: Report from Study
  Country: DE (occurrence: DE)
  Receive Date: 20130805
  Receipt Date: 20130805
  Transmission Date: 20140515
  Serious: Yes (Death, Other)
  Sender: FDA-Public Use
  Company Number: DE-009507513-1307DEU014606

PATIENT
  Age: 1 Day
  Sex: 0

DRUGS (3)
  1. MIRTAZAPINE [Suspect]
     Dosage: 45 MG, QD
     Route: 064
  2. QUETIAPINE [Suspect]
     Dosage: 100 MG, QD
     Route: 064
  3. VENLAFAXINE HYDROCHLORIDE [Suspect]
     Dosage: 300 MG, QD
     Route: 064

REACTIONS (4)
  - Premature baby [Unknown]
  - Asphyxia [Fatal]
  - Pneumonia [Fatal]
  - Foetal exposure during pregnancy [Recovered/Resolved]
